FAERS Safety Report 4320752-9 (Version None)
Quarter: 2004Q1

REPORT INFORMATION
  Report Type: 
  Country: None (occurrence: None)
  Receive Date: 20040318
  Receipt Date: 20040301
  Transmission Date: 20041129
  Serious: Yes (Death)
  Sender: FDA-Public Use
  Company Number: 2004-DE-01034UP (1)

PATIENT
  Age: 72 Year
  Sex: Female

DRUGS (1)
  1. MIRAPEX [Suspect]
     Indication: PARKINSON'S DISEASE
     Dosage: 3 MG, PO
     Route: 048
     Dates: start: 20030908

REACTIONS (1)
  - CARDIO-RESPIRATORY ARREST [None]
